FAERS Safety Report 5147256-8 (Version None)
Quarter: 2006Q4

REPORT INFORMATION
  Report Type: 
  Country: None (occurrence: None)
  Receive Date: 20061103
  Receipt Date: 20061025
  Transmission Date: 20070319
  Serious: Yes (Death)
  Sender: FDA-Public Use
  Company Number: 230839

PATIENT
  Age: 56 Year
  Sex: Female

DRUGS (2)
  1. AVASTIN [Suspect]
     Indication: BREAST CANCER METASTATIC
     Dosage: 680 MG, Q2W, INTRAVENOUS
     Route: 042
     Dates: start: 20060125
  2. NAVELBINE [Concomitant]

REACTIONS (1)
  - DISEASE PROGRESSION [None]
